FAERS Safety Report 11537193 (Version 1)
Quarter: 2015Q3

REPORT INFORMATION
  Report Type: Spontaneous
  Country: IN (occurrence: IN)
  Receive Date: 20150922
  Receipt Date: 20150922
  Transmission Date: 20151125
  Serious: Yes (Hospitalization)
  Sender: FDA-Public Use
  Company Number: IN-IMPAX LABORATORIES, INC-2015-IPXL-00934

PATIENT
  Age: 35 Year
  Sex: Male

DRUGS (3)
  1. BACLOFEN. [Suspect]
     Active Substance: BACLOFEN
     Indication: ALCOHOLISM
     Dosage: 40 MG, UNK
     Route: 065
  2. BACLOFEN. [Suspect]
     Active Substance: BACLOFEN
     Dosage: 400 MG, UNK
  3. DIAZEPAM. [Concomitant]
     Active Substance: DIAZEPAM
     Indication: ALCOHOLISM
     Dosage: UNK
     Route: 065

REACTIONS (5)
  - Treatment noncompliance [Unknown]
  - Suicide attempt [Recovered/Resolved]
  - Respiratory distress [Recovering/Resolving]
  - Coma [Recovered/Resolved]
  - Intentional overdose [Recovering/Resolving]
